FAERS Safety Report 4331037-9 (Version None)
Quarter: 2004Q1

REPORT INFORMATION
  Report Type: 
  Country: None (occurrence: None)
  Receive Date: 20040331
  Receipt Date: 20040319
  Transmission Date: 20041129
  Serious: Yes (Hospitalization)
  Sender: FDA-Public Use
  Company Number: US-JNJFOC-20040205828

PATIENT
  Age: 81 Year
  Sex: Female
  Weight: 79.8331 kg

DRUGS (17)
  1. REMICADE [Suspect]
     Indication: RHEUMATOID ARTHRITIS
     Dosage: 300 MG, INTRAVENOUS
     Route: 042
     Dates: start: 20021105
  2. REMICADE [Suspect]
     Indication: RHEUMATOID ARTHRITIS
     Dosage: 300 MG, INTRAVENOUS
     Route: 042
     Dates: start: 20021120
  3. REMICADE [Suspect]
     Indication: RHEUMATOID ARTHRITIS
     Dosage: 300 MG, INTRAVENOUS
     Route: 042
     Dates: start: 20030107
  4. REMICADE [Suspect]
     Indication: RHEUMATOID ARTHRITIS
     Dosage: 300 MG, INTRAVENOUS
     Route: 042
     Dates: start: 20040218
  5. ARAVA [Concomitant]
  6. SENEKOT (SENNA FRUIT) TABLETS [Concomitant]
  7. VITAMINE E (TOCOPHEROL) [Concomitant]
  8. VITAMIN C (ASCORBIC ACID) [Concomitant]
  9. CALTRATE (CALCIUM CARBONATE) [Concomitant]
  10. ASPIRIN [Concomitant]
  11. ASPIRIN [Concomitant]
  12. MULTIVITAMIN (MULTIVITAMINS) [Concomitant]
  13. PREVACID [Concomitant]
  14. DURAGESIC PATCH (FENTANYL) PATCH [Concomitant]
  15. RESTORIL [Concomitant]
  16. TYLENOL [Concomitant]
  17. LASIX [Concomitant]

REACTIONS (9)
  - ASTHENIA [None]
  - BURNING SENSATION [None]
  - FEELING HOT [None]
  - INTERVERTEBRAL DISC PROTRUSION [None]
  - LIGAMENT DISORDER [None]
  - LUMBAR SPINAL STENOSIS [None]
  - PARAESTHESIA [None]
  - RHEUMATOID ARTHRITIS [None]
  - SENSATION OF HEAVINESS [None]
